FAERS Safety Report 22100366 (Version 1)
Quarter: 2023Q1

REPORT INFORMATION
  Report Type: Report from Study
  Country: DE (occurrence: DE)
  Receive Date: 20230315
  Receipt Date: 20230315
  Transmission Date: 20230418
  Serious: Yes (Hospitalization, Other)
  Sender: FDA-Public Use
  Company Number: DE-ABBVIE-4341141

PATIENT
  Age: 59 Year
  Sex: Male
  Weight: 107 kg

DRUGS (8)
  1. SKYRIZI [Suspect]
     Active Substance: RISANKIZUMAB-RZAA
     Indication: Psoriasis
     Route: 058
     Dates: start: 20190708
  2. METOPROLOL [Concomitant]
     Active Substance: METOPROLOL
     Indication: Product used for unknown indication
  3. ATORVASTATIN [Concomitant]
     Active Substance: ATORVASTATIN
     Indication: Product used for unknown indication
  4. Ramilichi [Concomitant]
     Indication: Product used for unknown indication
     Dosage: 5 MG 0.5 PER DAY
  5. SPIRONOLACTONE [Concomitant]
     Active Substance: SPIRONOLACTONE
     Indication: Product used for unknown indication
     Dosage: 50 MG 0.5 PER DAY
  6. TORSEMIDE [Concomitant]
     Active Substance: TORSEMIDE
     Indication: Product used for unknown indication
  7. OLODATEROL HYDROCHLORIDE\TIOTROPIUM BROMIDE MONOHYDRATE [Concomitant]
     Active Substance: OLODATEROL HYDROCHLORIDE\TIOTROPIUM BROMIDE MONOHYDRATE
     Indication: Product used for unknown indication
     Dosage: 2.5/2.5 HUB
  8. ELIQUIS [Concomitant]
     Active Substance: APIXABAN
     Indication: Anticoagulant therapy

REACTIONS (15)
  - Cerebral infarction [Unknown]
  - Chronic obstructive pulmonary disease [Unknown]
  - Procedural pain [Unknown]
  - Aortic aneurysm [Unknown]
  - Hyponatraemia [Unknown]
  - Hyperkalaemia [Unknown]
  - Sleep apnoea syndrome [Unknown]
  - Arterial occlusive disease [Recovered/Resolved with Sequelae]
  - Acute myocardial infarction [Unknown]
  - Emphysema [Unknown]
  - Peripheral artery occlusion [Unknown]
  - Chronic kidney disease [Unknown]
  - Hypertension [Unknown]
  - Dysarthria [Unknown]
  - Iliac artery stenosis [Recovered/Resolved with Sequelae]

NARRATIVE: CASE EVENT DATE: 20200301
